FAERS Safety Report 19252059 (Version 1)
Quarter: 2021Q2

REPORT INFORMATION
  Report Type: Spontaneous
  Country: IT (occurrence: IT)
  Receive Date: 20210513
  Receipt Date: 20210513
  Transmission Date: 20210717
  Serious: Yes (Other)
  Sender: FDA-Public Use
  Company Number: IT-LUPIN PHARMACEUTICALS INC.-2021-06810

PATIENT
  Age: 44 Year
  Sex: Female

DRUGS (3)
  1. LEVETIRACETAM. [Suspect]
     Active Substance: LEVETIRACETAM
     Indication: TEMPORAL LOBE EPILEPSY
     Dosage: 1000 MILLIGRAM, QD
     Route: 065
  2. LAMOTRIGINE. [Suspect]
     Active Substance: LAMOTRIGINE
     Indication: TEMPORAL LOBE EPILEPSY
     Dosage: UNK
     Route: 065
     Dates: start: 2011
  3. LAMOTRIGINE. [Suspect]
     Active Substance: LAMOTRIGINE
     Dosage: 100 MILLIGRAM, QD (INCREASED)
     Route: 065
     Dates: end: 2013

REACTIONS (4)
  - Mental impairment [Unknown]
  - Somnolence [Unknown]
  - Therapeutic product effect incomplete [Unknown]
  - Depression [Unknown]

NARRATIVE: CASE EVENT DATE: 2013
